FAERS Safety Report 7074277-0 (Version None)
Quarter: 2010Q4

REPORT INFORMATION
  Report Type: 
  Country: None (occurrence: None)
  Receive Date: 20101029
  Receipt Date: 20101015
  Transmission Date: 20110411
  Serious: Yes (Other)
  Sender: FDA-Public Use
  Company Number: GB-MERCK-1010GBR00063

PATIENT
  Age: 26 Year
  Sex: Female
  Weight: 49 kg

DRUGS (13)
  1. FOSAMAX [Suspect]
     Indication: SYSTEMIC LUPUS ERYTHEMATOSUS
     Route: 048
  2. AZATHIOPRINE [Suspect]
     Indication: SYSTEMIC LUPUS ERYTHEMATOSUS
     Route: 065
     Dates: start: 20090309
  3. CHLORHEXIDINE GLUCONATE [Suspect]
     Route: 065
     Dates: start: 20090309, end: 20090420
  4. HYDROXYCHLOROQUINE SULFATE [Suspect]
     Indication: SYSTEMIC LUPUS ERYTHEMATOSUS
     Route: 065
     Dates: start: 20090918
  5. LACTULOSE [Suspect]
     Route: 065
     Dates: start: 20090309, end: 20090420
  6. METHYLPREDNISOLONE [Suspect]
     Route: 065
  7. MUPIROCIN [Suspect]
     Route: 065
     Dates: start: 20090309, end: 20090420
  8. ACETAMINOPHEN [Suspect]
     Route: 065
     Dates: start: 20090309, end: 20090420
  9. PREDNISOLONE [Suspect]
     Route: 065
  10. SENNA [Suspect]
     Route: 065
     Dates: start: 20090309, end: 20090420
  11. CODEINE SULFATE AND IPECAC AND SQUILL [Suspect]
     Route: 065
     Dates: start: 20090309, end: 20090420
  12. ASPIRIN [Concomitant]
     Route: 065
  13. FOLIC ACID [Concomitant]
     Route: 065

REACTIONS (2)
  - ABORTION [None]
  - DRUG EXPOSURE DURING PREGNANCY [None]
